FAERS Safety Report 9711569 (Version 2)
Quarter: 2013Q4

REPORT INFORMATION
  Report Type: Spontaneous
  Country: US (occurrence: US)
  Receive Date: 20131126
  Receipt Date: 20131126
  Transmission Date: 20140711
  Serious: No
  Sender: FDA-Public Use
  Company Number: US-BAYER-2013-129235

PATIENT
  Sex: Female

DRUGS (1)
  1. CLIMARA [Suspect]
     Dosage: 0.075 MG, UNK
     Route: 062

REACTIONS (3)
  - Erythema [None]
  - Wrong technique in drug usage process [None]
  - Product physical issue [None]
